FAERS Safety Report 10235072 (Version 2)
Quarter: 2014Q2

REPORT INFORMATION
  Report Type: Spontaneous
  Country: DE (occurrence: DE)
  Receive Date: 20140613
  Receipt Date: 20140613
  Transmission Date: 20141212
  Serious: Yes (Hospitalization)
  Sender: FDA-Public Use
  Company Number: DE-UCBSA-2014000434

PATIENT
  Sex: 0

DRUGS (2)
  1. LEVETIRACETAM [Suspect]
     Dosage: UNK
  2. LEVETIRACETAM [Suspect]
     Dosage: 2000 (UNITS UNSPECIFIED)

REACTIONS (3)
  - Hospitalisation [Unknown]
  - Fatigue [Unknown]
  - Convulsion [Recovered/Resolved]
